FAERS Safety Report 5314736-1 (Version None)
Quarter: 2007Q2

REPORT INFORMATION
  Report Type: 
  Country: None (occurrence: None)
  Receive Date: 20070426
  Receipt Date: 20070420
  Transmission Date: 20071010
  Serious: No
  Sender: FDA-Public Use
  Company Number: 2007BI005830

PATIENT
  Age: 44 Year
  Sex: Female

DRUGS (6)
  1. AVONEX [Suspect]
     Indication: MULTIPLE SCLEROSIS
     Dosage: 30 UG; QW; IM
     Route: 030
     Dates: start: 20070309
  2. MOTRIN [Concomitant]
  3. TYLENOL [Concomitant]
  4. PROVIGIL [Concomitant]
  5. FLONASE [Concomitant]
  6. LOMOTIL [Concomitant]

REACTIONS (2)
  - POST PROCEDURAL COMPLICATION [None]
  - PYREXIA [None]
